FAERS Safety Report 9482145 (Version 1)
Quarter: 2013Q3

REPORT INFORMATION
  Report Type: Spontaneous
  Country: GB (occurrence: GB)
  Receive Date: 20130828
  Receipt Date: 20130828
  Transmission Date: 20140515
  Serious: Yes (Death)
  Sender: FDA-Public Use
  Company Number: GB-JNJFOC-20130810582

PATIENT
  Age: 45 Year
  Sex: Female

DRUGS (1)
  1. INFLIXIMAB, RECOMBINANT [Suspect]
     Indication: OBLITERATIVE BRONCHIOLITIS
     Dosage: ATLEAST AT 2 AND 6 WEEKS
     Route: 042

REACTIONS (2)
  - Pulmonary function test decreased [Fatal]
  - Off label use [Unknown]
